FAERS Safety Report 7744723-5 (Version None)
Quarter: 2011Q3

REPORT INFORMATION
  Report Type: 
  Country: None (occurrence: None)
  Receive Date: 20110912
  Receipt Date: 20110107
  Transmission Date: 20111222
  Serious: No
  Sender: FDA-Public Use
  Company Number: US-BAYER-2011-003897

PATIENT
  Age: 44 Year
  Sex: Female

DRUGS (1)
  1. MAGNEVIST [Suspect]
     Indication: NUCLEAR MAGNETIC RESONANCE IMAGING
     Dosage: 12 ML, ONCE
     Route: 042
     Dates: start: 20110106, end: 20110106

REACTIONS (3)
  - URTICARIA [None]
  - ERYTHEMA [None]
  - PRURITUS GENERALISED [None]
